FAERS Safety Report 7945797-9 (Version None)
Quarter: 2011Q4

REPORT INFORMATION
  Report Type: 
  Country: None (occurrence: None)
  Receive Date: 20111129
  Receipt Date: 20111117
  Transmission Date: 20120403
  Serious: Yes (Other)
  Sender: FDA-Public Use
  Company Number: FR-ROCHE-1014447

PATIENT
  Age: 91 Year
  Sex: Female
  Weight: 63 kg

DRUGS (9)
  1. ASPIRIN [Concomitant]
     Dosage: 75 , 1 TABLET DAILY
  2. VINCRISTINE SULFATE [Concomitant]
  3. FURSEMID [Concomitant]
     Dosage: STRENGTH: 40
  4. MABTHERA [Suspect]
     Indication: B-CELL LYMPHOMA
     Route: 042
     Dates: start: 20110909, end: 20110929
  5. LEXOMIL [Concomitant]
     Dosage: EVENING DOSE
  6. CYCLOPHOSPHAMIDE [Concomitant]
  7. UMULINE PROFIL [Concomitant]
     Dosage: STRENGTH
  8. BISOPROLOL FUMARATE [Concomitant]
  9. SOLU-MEDROL [Concomitant]

REACTIONS (6)
  - CHILLS [None]
  - TACHYPNOEA [None]
  - CHEST DISCOMFORT [None]
  - PYREXIA [None]
  - CONFUSIONAL STATE [None]
  - TREMOR [None]
